FAERS Safety Report 5267955-7 (Version None)
Quarter: 2007Q1

REPORT INFORMATION
  Report Type: 
  Country: None (occurrence: None)
  Receive Date: 20061213
  Receipt Date: 20031222
  Transmission Date: 20070707
  Serious: Yes (Life-Threatening, Hospitalization)
  Sender: FDA-Public Use
  Company Number: 2003UW13799

PATIENT
  Sex: Female
  Weight: 38.5557 kg

DRUGS (7)
  1. IRESSA [Suspect]
     Indication: BARTHOLIN'S CYST
     Dosage: 250 MG DAILY PO
     Route: 048
     Dates: start: 20030801, end: 20030901
  2. SODIUM BENZOATE [Concomitant]
  3. SYNTHROID [Concomitant]
  4. MEGACE [Concomitant]
  5. MORPHINE SULFATE [Concomitant]
  6. DEXEDRINE [Concomitant]
  7. NEURONTIN [Concomitant]

REACTIONS (1)
  - INTERSTITIAL LUNG DISEASE [None]
